FAERS Safety Report 5499314-6 (Version None)
Quarter: 2007Q4

REPORT INFORMATION
  Report Type: 
  Country: None (occurrence: None)
  Receive Date: 20071026
  Receipt Date: 20071019
  Transmission Date: 20080405
  Serious: Yes (Other)
  Sender: FDA-Public Use
  Company Number: US-ASTRAZENECA-2007UW24413

PATIENT
  Sex: Female

DRUGS (1)
  1. ACCOLATE [Suspect]
     Dates: start: 20070901

REACTIONS (1)
  - INTRAOCULAR PRESSURE INCREASED [None]
